FAERS Safety Report 4643395-6 (Version None)
Quarter: 2005Q2

REPORT INFORMATION
  Report Type: 
  Country: None (occurrence: None)
  Receive Date: 20050324
  Receipt Date: 20041203
  Transmission Date: 20051028
  Serious: Yes (Other)
  Sender: FDA-Public Use
  Company Number: 210161

PATIENT
  Age: 78 Year
  Sex: Male
  Weight: 81.2 kg

DRUGS (1)
  1. AVASTIN [Suspect]
     Indication: COLON CANCER METASTATIC
     Dosage: 400 MG,Q2W,INTRAVENOUS
     Route: 042
     Dates: start: 20040610, end: 20040929

REACTIONS (1)
  - VENTRICULAR DYSFUNCTION [None]
